FAERS Safety Report 23452617 (Version 2)
Quarter: 2024Q3

REPORT INFORMATION
  Report Type: Spontaneous
  Country: US (occurrence: US)
  Receive Date: 20240129
  Receipt Date: 20240730
  Transmission Date: 20241017
  Serious: No
  Sender: SAREPTA THERAPEUTICS
  Company Number: US-SAREPTA THERAPEUTICS INC.-SRP2024-004208

PATIENT
  Age: 4 Year
  Sex: Male
  Weight: 16.3 kg

DRUGS (4)
  1. AMONDYS 45 [Suspect]
     Active Substance: CASIMERSEN
     Indication: Duchenne muscular dystrophy
     Dosage: 500 MILLIGRAM, WEEKLY
     Route: 042
     Dates: start: 20230720, end: 20231227
  2. AMONDYS 45 [Suspect]
     Active Substance: CASIMERSEN
     Dosage: 500 MILLIGRAM, WEEKLY
     Route: 042
     Dates: start: 20240108
  3. TYLENOL [Concomitant]
     Active Substance: ACETAMINOPHEN
     Indication: Product used for unknown indication
     Route: 048
  4. DIPHENHYDRAMINE HYDROCHLORIDE [Concomitant]
     Active Substance: DIPHENHYDRAMINE HYDROCHLORIDE
     Indication: Product used for unknown indication
     Route: 048

REACTIONS (2)
  - Infusion site extravasation [Recovered/Resolved]
  - Infusion site swelling [Recovered/Resolved]

NARRATIVE: CASE EVENT DATE: 20240102
